FAERS Safety Report 8470260-9 (Version None)
Quarter: 2012Q2

REPORT INFORMATION
  Report Type: 
  Country: None (occurrence: None)
  Receive Date: 20120621
  Receipt Date: 20120621
  Transmission Date: 20120825
  Serious: Yes (Disabling, Other)
  Sender: FDA-Public Use
  Company Number: None

PATIENT
  Sex: Male

DRUGS (3)
  1. PREDNISONE [Concomitant]
  2. CELLCEPT [Suspect]
     Indication: RENAL TRANSPLANT
     Dosage: 250MG 4 CAPSULES 2X DAY PO
     Route: 048
     Dates: start: 20061226, end: 20120301
  3. BLOOD PRESSURE MEDICATION [Concomitant]

REACTIONS (1)
  - LYMPHOMA [None]
